FAERS Safety Report 9606591 (Version 1)
Quarter: 2013Q4

REPORT INFORMATION
  Report Type: Spontaneous
  Country: US (occurrence: US)
  Receive Date: 20131008
  Receipt Date: 20131008
  Transmission Date: 20140711
  Serious: No
  Sender: FDA-Public Use
  Company Number: US-AMGEN-USASP2013059905

PATIENT
  Age: 70 Year
  Sex: Female

DRUGS (6)
  1. PROLIA [Suspect]
     Indication: PRODUCT USED FOR UNKNOWN INDICATION
     Dosage: UNK
     Route: 065
  2. METFORMIN                          /00082702/ [Concomitant]
     Route: 065
  3. JANUVIA [Concomitant]
     Route: 065
  4. PLAVIX [Concomitant]
     Route: 065
  5. ZOCOR [Concomitant]
     Route: 065
  6. LISINOPRIL                         /00894002/ [Concomitant]
     Route: 065

REACTIONS (1)
  - Rash [Not Recovered/Not Resolved]
